FAERS Safety Report 7503198-1 (Version None)
Quarter: 2011Q2

REPORT INFORMATION
  Report Type: 
  Country: None (occurrence: None)
  Receive Date: 20110518
  Receipt Date: 20110505
  Transmission Date: 20111010
  Serious: Yes (Hospitalization, Other)
  Sender: FDA-Public Use
  Company Number: 2011P1006330

PATIENT
  Age: 72 Year
  Sex: Male

DRUGS (6)
  1. WARFARIN SODIUM [Suspect]
     Indication: CEREBROVASCULAR ACCIDENT
     Dosage: 3 TABLETS;QD;PO
     Route: 048
     Dates: start: 20070101
  2. WARFARIN SODIUM [Suspect]
     Indication: THROMBOSIS PROPHYLAXIS
     Dosage: 3 TABLETS;QD;PO
     Route: 048
     Dates: start: 20070101
  3. WARFARIN SODIUM [Suspect]
     Indication: PROPHYLAXIS
     Dosage: 3 TABLETS;QD;PO
     Route: 048
     Dates: start: 20070101
  4. DILTIAZEM [Concomitant]
  5. LOVENOX [Concomitant]
  6. AMOXICILLIN [Concomitant]

REACTIONS (1)
  - CEREBROVASCULAR ACCIDENT [None]
